FAERS Safety Report 5787072-7 (Version None)
Quarter: 2008Q2

REPORT INFORMATION
  Report Type: 
  Country: None (occurrence: None)
  Receive Date: 20080618
  Receipt Date: 20080606
  Transmission Date: 20081010
  Serious: Yes (Hospitalization)
  Sender: FDA-Public Use
  Company Number: 2008AL004492

PATIENT
  Age: 76 Year
  Sex: Female
  Weight: 62.1428 kg

DRUGS (7)
  1. DIGOXIN [Suspect]
     Indication: ATRIAL FIBRILLATION
     Dosage: 0.25 MG,DAILY,PO
     Route: 048
  2. METOPROLOL SUCCINATE [Concomitant]
  3. COUMADIN [Concomitant]
  4. ISOSORBIDE DINITRATE [Concomitant]
  5. METFORMIN HCL [Concomitant]
  6. LOVASTATIN [Concomitant]
  7. KLOR-CON [Concomitant]

REACTIONS (5)
  - DIZZINESS [None]
  - FALL [None]
  - NAUSEA [None]
  - ORTHOSTATIC HYPOTENSION [None]
  - PNEUMONIA [None]
